FAERS Safety Report 13746725 (Version 1)
Quarter: 2017Q3

REPORT INFORMATION
  Report Type: Spontaneous
  Country: FR (occurrence: FR)
  Receive Date: 20170712
  Receipt Date: 20170712
  Transmission Date: 20171127
  Serious: Yes (Other)
  Sender: FDA-Public Use
  Company Number: FR-BAYER-2017-131801

PATIENT
  Age: 37 Year
  Sex: Female
  Weight: 82 kg

DRUGS (1)
  1. MIRENA [Suspect]
     Active Substance: LEVONORGESTREL
     Indication: CONTRACEPTION
     Dosage: 20 MCG/24HR, CONT
     Route: 015
     Dates: start: 20100201, end: 20101101

REACTIONS (7)
  - Malaise [Unknown]
  - Migraine [Unknown]
  - Alopecia [Unknown]
  - Loss of libido [Unknown]
  - Myalgia [Unknown]
  - Vertigo [Unknown]
  - Mood swings [Unknown]

NARRATIVE: CASE EVENT DATE: 20100601
